FAERS Safety Report 4474996-6 (Version None)
Quarter: 2004Q3

REPORT INFORMATION
  Report Type: 
  Country: None (occurrence: None)
  Receive Date: 20040923
  Receipt Date: 20040628
  Transmission Date: 20050211
  Serious: No
  Sender: FDA-Public Use
  Company Number: USA040671167

PATIENT
  Age: 69 Year
  Sex: Female
  Weight: 56 kg

DRUGS (6)
  1. FORTEO [Suspect]
     Indication: OSTEOPOROSIS
     Dosage: 20 UG/1 DAY
     Dates: start: 20040302, end: 20040501
  2. ZOCOR [Concomitant]
  3. FAMVIR (PENCICLOVIR) [Concomitant]
  4. VITAMINS NOS [Concomitant]
  5. CALTRATE (CALCIUM CARBONATE) [Concomitant]
  6. ACTONEL (RISENDRONATE SODIUM) [Concomitant]

REACTIONS (1)
  - PARAESTHESIA [None]
